FAERS Safety Report 24685507 (Version 1)
Quarter: 2024Q4

REPORT INFORMATION
  Report Type: Spontaneous
  Country: JP (occurrence: JP)
  Receive Date: 20241202
  Receipt Date: 20241202
  Transmission Date: 20250114
  Serious: Yes (Other)
  Sender: ROCHE
  Company Number: JP-CHUGAI-2024041389

PATIENT
  Age: 70 Year
  Sex: Male

DRUGS (4)
  1. CELLCEPT [Suspect]
     Active Substance: MYCOPHENOLATE MOFETIL
     Indication: Liver disorder
     Dosage: 1 GRAM/DAY
     Route: 048
  2. PHENOBARBITAL [Concomitant]
     Active Substance: PHENOBARBITAL
     Indication: Liver disorder
     Dosage: 90 MILLIGRAM/DAY
     Route: 065
  3. VITAMIN K [Concomitant]
     Active Substance: PHYTONADIONE
     Indication: Liver disorder
     Dosage: UNK
     Route: 050
  4. PREDNISOLONE [Concomitant]
     Active Substance: PREDNISOLONE
     Dosage: 2MG/KG/DAY
     Route: 065

REACTIONS (5)
  - Pneumonia [Unknown]
  - Systemic mycosis [Unknown]
  - Neutrophil count decreased [Unknown]
  - Cytomegalovirus infection [Unknown]
  - Off label use [Unknown]
